FAERS Safety Report 17230228 (Version 1)
Quarter: 2020Q1

REPORT INFORMATION
  Report Type: Spontaneous
  Country: CA (occurrence: CA)
  Receive Date: 20200103
  Receipt Date: 20200103
  Transmission Date: 20200409
  Serious: Yes (Death, Other)
  Sender: FDA-Public Use
  Company Number: CA-AMGEN-CANSP2019217406

PATIENT

DRUGS (3)
  1. XGEVA [Suspect]
     Active Substance: DENOSUMAB
     Indication: METASTATIC RENAL CELL CARCINOMA
     Dosage: 120 MILLIGRAM, Q4WK
     Route: 058
  2. PAZOPANIB [Concomitant]
     Active Substance: PAZOPANIB
  3. SUNITINIB [Concomitant]
     Active Substance: SUNITINIB

REACTIONS (2)
  - Death [Fatal]
  - Disease progression [Unknown]
